FAERS Safety Report 5291226-6 (Version None)
Quarter: 2007Q2

REPORT INFORMATION
  Report Type: 
  Country: None (occurrence: None)
  Receive Date: 20070409
  Receipt Date: 20070329
  Transmission Date: 20071010
  Serious: Yes (Life-Threatening)
  Sender: FDA-Public Use
  Company Number: FR-PFIZER INC-2007025961

PATIENT
  Age: 41 Year
  Sex: Male

DRUGS (1)
  1. CHAMPIX [Suspect]
     Indication: TOBACCO WITHDRAWAL SYMPTOMS
     Dosage: TEXT:2 DF-FREQ:INTERVAL: EVERY DAY
     Route: 048
     Dates: start: 20070219, end: 20070307

REACTIONS (5)
  - AGEUSIA [None]
  - DEPRESSION [None]
  - INCREASED APPETITE [None]
  - POOR QUALITY SLEEP [None]
  - SUICIDAL IDEATION [None]
